FAERS Safety Report 10251145 (Version 3)
Quarter: 2014Q3

REPORT INFORMATION
  Report Type: Report from Study
  Country: TR (occurrence: TR)
  Receive Date: 20140620
  Receipt Date: 20140806
  Transmission Date: 20150326
  Serious: Yes (Death, Hospitalization)
  Sender: FDA-Public Use
  Company Number: TR-009507513-1406TUR008408

PATIENT
  Age: 74 Year
  Sex: Male
  Weight: 60 kg

DRUGS (8)
  1. DEXAMETHASONE. [Suspect]
     Active Substance: DEXAMETHASONE
     Indication: PLASMA CELL MYELOMA
     Dosage: 20MG ORALLY ON DAYS ONE, TWO, FOUR, FIVE, EIGHT, NINE, 11,12 EVERY 21 DAYS
     Route: 048
     Dates: start: 20130813, end: 20140204
  2. BORTEZOMIB [Suspect]
     Active Substance: BORTEZOMIB
     Indication: PLASMA CELL MYELOMA
     Dosage: 1.3 MG/M2, ON DAYS 1, 4, 8, 11 EVERY 21 DAYS
     Route: 058
     Dates: start: 20130813, end: 20140203
  3. BACTRIM [Concomitant]
     Active Substance: SULFAMETHOXAZOLE\TRIMETHOPRIM
  4. MITOXANTRONE HYDROCHLORIDE. [Concomitant]
     Active Substance: MITOXANTRONE HYDROCHLORIDE
  5. ASIVIRAL [Concomitant]
     Active Substance: ACYCLOVIR
  6. AZACITIDINE. [Concomitant]
     Active Substance: AZACITIDINE
     Indication: ACUTE MYELOID LEUKAEMIA
  7. FLUCONAZOLE. [Concomitant]
     Active Substance: FLUCONAZOLE
  8. CYTARABINE. [Concomitant]
     Active Substance: CYTARABINE

REACTIONS (3)
  - Leukaemia [Unknown]
  - Pancytopenia [Fatal]
  - Cardiac arrest [Fatal]

NARRATIVE: CASE EVENT DATE: 20140305
